FAERS Safety Report 20993663 (Version 1)
Quarter: 2022Q2

REPORT INFORMATION
  Report Type: Other
  Country: BR (occurrence: None)
  Receive Date: 20220622
  Receipt Date: 20220622
  Transmission Date: 20220721
  Serious: Yes (Other)
  Sender: FDA-Public Use
  Company Number: BR-ROCHE-3087258

PATIENT
  Sex: Female
  Weight: 68 kg

DRUGS (2)
  1. MABTHERA [Suspect]
     Active Substance: RITUXIMAB
     Indication: Immunoglobulin G4 related disease
     Dosage: 2 AMPOULES, LAST INFUSION WAS PERFORMED ON 25/OCT/2022.?LAST INFUSION; 10/MAY/2022.
     Route: 042
     Dates: start: 20211015
  2. EPINEPHRINE [Concomitant]
     Active Substance: EPINEPHRINE

REACTIONS (2)
  - Laryngeal oedema [Recovered/Resolved]
  - Off label use [Unknown]
